FAERS Safety Report 14145679 (Version 1)
Quarter: 2017Q4

REPORT INFORMATION
  Report Type: Spontaneous
  Country: US (occurrence: US)
  Receive Date: 20171030
  Receipt Date: 20171030
  Transmission Date: 20180321
  Serious: Yes (Other)
  Sender: FDA-Public Use
  Company Number: None

PATIENT
  Age: 23 Year
  Sex: Female
  Weight: 76.5 kg

DRUGS (3)
  1. UP+UP THREE-STEP ACNE CARE SYSTEM (GENERIC PROACTIV/BENZOYL PEROXIDE) [Suspect]
     Active Substance: BENZOYL PEROXIDE
     Indication: ACNE
     Route: 061
     Dates: start: 20171021, end: 20171024
  2. DAILY VITAMINS [Concomitant]
  3. PHENTERMINE. [Concomitant]
     Active Substance: PHENTERMINE

REACTIONS (7)
  - Product contamination physical [None]
  - Skin exfoliation [None]
  - Skin atrophy [None]
  - Skin irritation [None]
  - Hyperaesthesia [None]
  - Chemical burn [None]
  - Skin ulcer [None]

NARRATIVE: CASE EVENT DATE: 20171021
